FAERS Safety Report 4628215-8 (Version None)
Quarter: 2005Q2

REPORT INFORMATION
  Report Type: 
  Country: None (occurrence: None)
  Receive Date: 20050401
  Receipt Date: 20030924
  Transmission Date: 20051028
  Serious: Yes (Hospitalization)
  Sender: FDA-Public Use
  Company Number: 6178

PATIENT
  Age: 50 Year
  Sex: Male

DRUGS (4)
  1. DOXORUBICIN HCL [Suspect]
     Indication: HODGKIN'S DISEASE
     Dosage: 50 MG/M2 PER_CYCLE
  2. BLEOMYCIN [Suspect]
     Indication: HODGKIN'S DISEASE
     Dosage: 20 IU/M2 PER_CYCLE
  3. VINBLASTINE SULFATE [Suspect]
     Indication: HODGKIN'S DISEASE
     Dosage: 12 MG/M2 PER_CYCLE
  4. GEMZAR [Suspect]
     Indication: HODGKIN'S DISEASE

REACTIONS (3)
  - DISEASE PROGRESSION [None]
  - HODGKIN'S DISEASE [None]
  - HYPOXIA [None]
